FAERS Safety Report 5453804-0 (Version None)
Quarter: 2007Q3

REPORT INFORMATION
  Report Type: 
  Country: None (occurrence: None)
  Receive Date: 20070917
  Receipt Date: 20070905
  Transmission Date: 20080115
  Serious: Yes (Hospitalization, Other)
  Sender: FDA-Public Use
  Company Number: US-KINGPHARMUSA00001-K200701072

PATIENT

DRUGS (6)
  1. ALTACE [Suspect]
     Route: 048
     Dates: end: 20070319
  2. CELLCEPT [Suspect]
     Indication: RENAL TRANSPLANT
     Route: 048
     Dates: start: 20051206, end: 20070316
  3. MOPRAL  /00661201/ [Suspect]
     Indication: DRUG USE FOR UNKNOWN INDICATION
     Route: 048
     Dates: end: 20070316
  4. SOLU-MEDROL [Concomitant]
     Dosage: 10 MG, UNK
     Route: 048
     Dates: start: 20051206
  5. LASILIX /00032601/ [Concomitant]
     Dosage: 80 MG, UNK
     Route: 048
     Dates: start: 20051206
  6. NEORAL [Concomitant]
     Dosage: 160 MG, UNK
     Route: 048
     Dates: start: 20051206

REACTIONS (6)
  - AGRANULOCYTOSIS [None]
  - ASTHENIA [None]
  - BONE MARROW FAILURE [None]
  - GENERAL PHYSICAL HEALTH DETERIORATION [None]
  - MYELOID MATURATION ARREST [None]
  - NEUTROPENIA [None]
